FAERS Safety Report 24858975 (Version 3)
Quarter: 2025Q1

REPORT INFORMATION
  Report Type: Spontaneous
  Country: US (occurrence: US)
  Receive Date: 20250118
  Receipt Date: 20250321
  Transmission Date: 20250409
  Serious: Yes (Disabling, Other)
  Sender: AMGEN
  Company Number: US-AMGEN-USASP2025006366

PATIENT
  Age: 65 Year
  Sex: Male

DRUGS (33)
  1. TEPEZZA [Suspect]
     Active Substance: TEPROTUMUMAB-TRBW
     Indication: Toxic goitre
     Dosage: 1418 MILLIGRAM, Q3WK (10 MG/KG) (FIRST DOSE)
     Route: 040
     Dates: start: 20220914
  2. TEPEZZA [Suspect]
     Active Substance: TEPROTUMUMAB-TRBW
     Indication: Endocrine ophthalmopathy
     Dosage: 2767 MILLIGRAM, Q3WK (20 MG/KG) (DOSE 2)
     Route: 040
     Dates: start: 20221005
  3. TEPEZZA [Suspect]
     Active Substance: TEPROTUMUMAB-TRBW
     Dosage: 2784 MILLIGRAM, Q3WK (DOSE 3) (20 MG/KG)
     Route: 040
     Dates: start: 20221026
  4. TEPEZZA [Suspect]
     Active Substance: TEPROTUMUMAB-TRBW
     Dosage: 2709 MILLIGRAM, Q3WK (DOSE 4) (20 MG/KG)
     Route: 040
     Dates: start: 20221123
  5. TEPEZZA [Suspect]
     Active Substance: TEPROTUMUMAB-TRBW
     Dosage: 2624 MILLIGRAM, Q3WK (DOSE 5) (20 MG/KG)
     Route: 040
     Dates: start: 20221221
  6. TEPEZZA [Suspect]
     Active Substance: TEPROTUMUMAB-TRBW
     Dosage: 2611 MILLIGRAM, Q3WK (DOSE 6) (20 MG/KG)
     Route: 040
     Dates: start: 20230111
  7. TEPEZZA [Suspect]
     Active Substance: TEPROTUMUMAB-TRBW
     Dosage: 2662 MILLIGRAM, Q3WK (DOSE 7) (20 MG/KG)
     Route: 040
     Dates: start: 20230201
  8. TEPEZZA [Suspect]
     Active Substance: TEPROTUMUMAB-TRBW
     Dosage: 2609 MILLIGRAM, Q3WK (DOSE 8) (20 MG/KG)
     Route: 040
     Dates: start: 20230301
  9. STERILE WATER [Concomitant]
     Active Substance: WATER
     Route: 065
     Dates: start: 20220914
  10. STERILE WATER [Concomitant]
     Active Substance: WATER
     Route: 065
     Dates: start: 20221005
  11. STERILE WATER [Concomitant]
     Active Substance: WATER
     Route: 065
     Dates: start: 20221026
  12. STERILE WATER [Concomitant]
     Active Substance: WATER
     Route: 065
     Dates: start: 20221123
  13. STERILE WATER [Concomitant]
     Active Substance: WATER
     Route: 065
     Dates: start: 20221221
  14. STERILE WATER [Concomitant]
     Active Substance: WATER
     Route: 065
     Dates: start: 20230111
  15. STERILE WATER [Concomitant]
     Active Substance: WATER
     Route: 065
     Dates: start: 20230201
  16. STERILE WATER [Concomitant]
     Active Substance: WATER
     Route: 065
     Dates: start: 20230301
  17. SODIUM CHLORIDE [Concomitant]
     Active Substance: SODIUM CHLORIDE
     Route: 065
     Dates: start: 20220914
  18. SODIUM CHLORIDE [Concomitant]
     Active Substance: SODIUM CHLORIDE
     Route: 065
     Dates: start: 20221005
  19. SODIUM CHLORIDE [Concomitant]
     Active Substance: SODIUM CHLORIDE
     Route: 065
     Dates: start: 20221026
  20. SODIUM CHLORIDE [Concomitant]
     Active Substance: SODIUM CHLORIDE
     Route: 065
     Dates: start: 20221123
  21. SODIUM CHLORIDE [Concomitant]
     Active Substance: SODIUM CHLORIDE
     Route: 065
     Dates: start: 20221221
  22. SODIUM CHLORIDE [Concomitant]
     Active Substance: SODIUM CHLORIDE
     Route: 065
     Dates: start: 20230111
  23. SODIUM CHLORIDE [Concomitant]
     Active Substance: SODIUM CHLORIDE
     Route: 065
     Dates: start: 20230201
  24. SODIUM CHLORIDE [Concomitant]
     Active Substance: SODIUM CHLORIDE
     Route: 065
     Dates: start: 20230301
  25. METHIMAZOLE [Concomitant]
     Active Substance: METHIMAZOLE
     Dosage: 10 MILLIGRAM, Q8H
     Route: 048
  26. METHIMAZOLE [Concomitant]
     Active Substance: METHIMAZOLE
     Dosage: 10 MILLIGRAM, BID
     Route: 048
  27. SERTRALINE [Concomitant]
     Active Substance: SERTRALINE HYDROCHLORIDE
     Dosage: 100 MILLIGRAM, QD
     Route: 048
  28. PROPRANOLOL [Concomitant]
     Active Substance: PROPRANOLOL HYDROCHLORIDE
     Dosage: 20 MILLIGRAM, BID
     Route: 048
  29. LISINOPRIL [Concomitant]
     Active Substance: LISINOPRIL
     Dosage: 20 MILLIGRAM, QD
     Route: 048
  30. LISINOPRIL [Concomitant]
     Active Substance: LISINOPRIL
     Dosage: 10 MILLIGRAM, QD
     Route: 048
  31. PROPRANOLOL HYDROCHLORIDE [Concomitant]
     Active Substance: PROPRANOLOL HYDROCHLORIDE
     Dosage: 20 MILLIGRAM, BID
     Route: 048
  32. PAXIL [Concomitant]
     Active Substance: PAROXETINE HYDROCHLORIDE
     Dosage: 30 MILLIGRAM, BID
     Route: 048
  33. VITAMIN B COMPLEX [Concomitant]
     Active Substance: CYANOCOBALAMIN\DEXPANTHENOL\NIACINAMIDE\PYRIDOXINE HYDROCHLORIDE\RIBOFLAVIN 5^-PHOSPHATE SODIUM\THIA
     Dosage: UNK, QD (1 TABLET)
     Route: 048

REACTIONS (10)
  - Deafness neurosensory [Not Recovered/Not Resolved]
  - Endocrine ophthalmopathy [Unknown]
  - Graves^ disease [Unknown]
  - Muscle spasms [Unknown]
  - Nausea [Unknown]
  - Decreased appetite [Unknown]
  - Diarrhoea [Unknown]
  - Emotional distress [Unknown]
  - Anxiety [Unknown]
  - Product use complaint [Unknown]

NARRATIVE: CASE EVENT DATE: 20220101
